FAERS Safety Report 5594668-4 (Version None)
Quarter: 2008Q1

REPORT INFORMATION
  Report Type: 
  Country: None (occurrence: None)
  Receive Date: 20080117
  Receipt Date: 20071217
  Transmission Date: 20080703
  Serious: No
  Sender: FDA-Public Use
  Company Number: US-BAYER-200716591NA

PATIENT
  Sex: Male

DRUGS (1)
  1. REFLUDAN [Suspect]
     Indication: HEPARIN-INDUCED THROMBOCYTOPENIA

REACTIONS (3)
  - ACTIVATED PARTIAL THROMBOPLASTIN TIME PROLONGED [None]
  - INTERNATIONAL NORMALISED RATIO INCREASED [None]
  - PROTHROMBIN TIME PROLONGED [None]
